FAERS Safety Report 11238668 (Version 1)
Quarter: 2015Q3

REPORT INFORMATION
  Report Type: Report from Study
  Country: AU (occurrence: AU)
  Receive Date: 20150706
  Receipt Date: 20150706
  Transmission Date: 20151125
  Serious: Yes (Hospitalization, Other)
  Sender: FDA-Public Use
  Company Number: PHHY2015AU051564

PATIENT
  Age: 34 Year
  Sex: Female

DRUGS (4)
  1. RAMIPRIL. [Concomitant]
     Active Substance: RAMIPRIL
     Indication: HYPERTENSION
     Dosage: 1.25 MG, QD
     Route: 048
     Dates: start: 20150430
  2. CLOZARIL [Suspect]
     Active Substance: CLOZAPINE
     Indication: SCHIZOPHRENIA
     Dosage: UNK
     Route: 048
     Dates: start: 20020830
  3. CLOZARIL [Suspect]
     Active Substance: CLOZAPINE
     Dosage: 400 MG, NOCTE
     Route: 048
     Dates: end: 20150424
  4. THYROXINE [Concomitant]
     Active Substance: LEVOTHYROXINE
     Indication: THYROID HORMONE REPLACEMENT THERAPY
     Dosage: 50 UG, NOCTE
     Route: 048

REACTIONS (8)
  - Cardiomyopathy [Recovering/Resolving]
  - Anxiety [Unknown]
  - Tachyarrhythmia [Recovering/Resolving]
  - Sinus tachycardia [Recovering/Resolving]
  - Tachycardia [Recovering/Resolving]
  - Blood creatine phosphokinase decreased [Unknown]
  - Blood creatine phosphokinase increased [Unknown]
  - Headache [Recovered/Resolved]

NARRATIVE: CASE EVENT DATE: 2012
